FAERS Safety Report 8480037-6 (Version None)
Quarter: 2012Q2

REPORT INFORMATION
  Report Type: 
  Country: None (occurrence: None)
  Receive Date: 20120629
  Receipt Date: 20120625
  Transmission Date: 20120825
  Serious: No
  Sender: FDA-Public Use
  Company Number: GB-ABBOTT-12P-167-0942135-00

PATIENT
  Age: 64 Year
  Sex: Male

DRUGS (3)
  1. DIETHYL-STILBESTROL TAB [Concomitant]
     Indication: PROSTATE CANCER
     Dates: start: 20101222
  2. LEUPROLIDE ACETATE [Suspect]
     Indication: PROSTATE CANCER
     Route: 030
     Dates: start: 20120229
  3. ASPIRIN [Concomitant]
     Indication: THROMBOSIS PROPHYLAXIS
     Route: 048
     Dates: start: 20101222

REACTIONS (2)
  - PROSTATIC SPECIFIC ANTIGEN INCREASED [None]
  - INCORRECT ROUTE OF DRUG ADMINISTRATION [None]
